FAERS Safety Report 9448147 (Version 1)
Quarter: 2013Q3

REPORT INFORMATION
  Report Type: Spontaneous
  Country: DE (occurrence: None)
  Receive Date: 20130806
  Receipt Date: 20130806
  Transmission Date: 20140515
  Serious: Yes (Hospitalization)
  Sender: FDA-Public Use
  Company Number: VAL_02669_2013

PATIENT
  Age: 82 Year
  Sex: Male

DRUGS (4)
  1. METOPROLOL (METOPROLOL-METOPROLOL TARTRATE) [Suspect]
     Indication: ILL-DEFINED DISORDER
  2. RAMIPRIL (RAMIPRIL) [Suspect]
  3. TORASEMIDE (TORASEMIDE) [Suspect]
     Indication: ILL-DEFINED DISORDER
     Dosage: REGIMEN #1
  4. CANAKINUMAB [Suspect]
     Indication: PROPHYLAXIS
     Dosage: CODE NOT BROKEN (REGIMEN #1 SUBCUTANEOUS)
     Dates: start: 20120726

REACTIONS (1)
  - Syncope [None]
